FAERS Safety Report 4770653-7 (Version None)
Quarter: 2005Q3

REPORT INFORMATION
  Report Type: 
  Country: None (occurrence: None)
  Receive Date: 20050915
  Receipt Date: 20050907
  Transmission Date: 20060218
  Serious: Yes (Death)
  Sender: FDA-Public Use
  Company Number: US-JNJFOC-20050902411

PATIENT
  Age: 29 Year
  Sex: Female

DRUGS (2)
  1. FENTANYL [Suspect]
     Indication: INTENTIONAL MISUSE
     Route: 048
  2. FLURAZEPAM [Suspect]
     Indication: DRUG USE FOR UNKNOWN INDICATION
     Route: 048

REACTIONS (3)
  - BRAIN OEDEMA [None]
  - DRUG ABUSER [None]
  - OVERDOSE [None]
